FAERS Safety Report 21266359 (Version 1)
Quarter: 2022Q3

REPORT INFORMATION
  Report Type: Report from Study
  Country: US (occurrence: US)
  Receive Date: 20220829
  Receipt Date: 20220829
  Transmission Date: 20221027
  Serious: Yes (Other)
  Sender: FDA-Public Use
  Company Number: US-ABBVIE-22K-163-4520023-00

PATIENT
  Sex: Male

DRUGS (1)
  1. HUMIRA [Suspect]
     Active Substance: ADALIMUMAB
     Indication: Psoriasis
     Route: 058

REACTIONS (5)
  - Renal failure [Recovered/Resolved]
  - Infection [Recovered/Resolved]
  - Scar [Unknown]
  - Depression [Unknown]
  - Obesity [Unknown]

NARRATIVE: CASE EVENT DATE: 20210101
